FAERS Safety Report 4982997-4 (Version None)
Quarter: 2006Q2

REPORT INFORMATION
  Report Type: 
  Country: None (occurrence: None)
  Receive Date: 20060426
  Receipt Date: 20060322
  Transmission Date: 20061013
  Serious: Yes (Hospitalization)
  Sender: FDA-Public Use
  Company Number: PHBS2006CO04407

PATIENT
  Age: 58 Year
  Sex: Female

DRUGS (7)
  1. DIOVAN HCT [Suspect]
     Indication: HYPERTENSION
     Dosage: VALS 80 / HCT 12.5 MG/DAY
     Route: 048
     Dates: start: 20040601, end: 20060411
  2. EUTHYROX [Concomitant]
     Indication: HYPOTHYROIDISM
     Dosage: 100 MG, UNK
  3. XENICAL [Concomitant]
     Dosage: 120 MG, TID
  4. BUSCAPINE [Concomitant]
  5. PLASIL [Concomitant]
  6. METOPROLOL TARTRATE [Concomitant]
     Dosage: 25 MG/DAY
     Route: 048
     Dates: end: 20060411
  7. OXYGEN [Concomitant]
     Indication: PULMONARY HYPERTENSION
     Dosage: 2 LITERS/MINUTE

REACTIONS (4)
  - ARRHYTHMIA [None]
  - ATRIAL FIBRILLATION [None]
  - BLOOD PRESSURE DECREASED [None]
  - CALCULUS BLADDER [None]
